FAERS Safety Report 8972582 (Version 1)
Quarter: 2012Q4

REPORT INFORMATION
  Report Type: 
  Country: US (occurrence: US)
  Receive Date: 20121219
  Receipt Date: 20121219
  Transmission Date: 20130627
  Serious: Yes (Hospitalization)
  Sender: FDA-Public Use
  Company Number: US-ELI_LILLY_AND_COMPANY-US201212002253

PATIENT
  Age: 76 Year
  Sex: Female

DRUGS (13)
  1. FORTEO [Suspect]
     Indication: OSTEOPOROSIS
     Dosage: UNK
     Dates: start: 201112, end: 201210
  2. FORTEO [Suspect]
     Dosage: 20 ug, qd
  3. CARDIA [Concomitant]
  4. LEVOTHYROXINE [Concomitant]
  5. FENOFIBRATE [Concomitant]
  6. SERTRALINE [Concomitant]
  7. STOOL SOFTENER [Concomitant]
  8. POTASSIUM [Concomitant]
  9. SIMVASTATIN [Concomitant]
  10. IRON [Concomitant]
  11. TRAZODONE [Concomitant]
  12. MULTIVITAMIN [Concomitant]
  13. FIBER [Concomitant]

REACTIONS (3)
  - Lower limb fracture [Unknown]
  - Contusion [Unknown]
  - Fall [Unknown]
